FAERS Safety Report 25998296 (Version 3)
Quarter: 2025Q4

REPORT INFORMATION
  Report Type: Spontaneous
  Country: JP (occurrence: JP)
  Receive Date: 20251105
  Receipt Date: 20251222
  Transmission Date: 20260118
  Serious: Yes (Hospitalization)
  Sender: ABBVIE
  Company Number: JP-ABBVIE-6528003

PATIENT
  Age: 40 Year
  Sex: Male

DRUGS (2)
  1. RINVOQ [Suspect]
     Active Substance: UPADACITINIB
     Indication: Crohn^s disease
     Dosage: FORM STRENGTH 45 MILLIGRAM
     Route: 048
     Dates: start: 20251023, end: 202510
  2. RINVOQ [Suspect]
     Active Substance: UPADACITINIB
     Indication: Crohn^s disease
     Dosage: RESUMED TAKING RINVOQ
     Route: 048
     Dates: start: 2025

REACTIONS (3)
  - Small intestinal haemorrhage [Recovered/Resolved]
  - Crohn^s disease [Unknown]
  - Melaena [Unknown]

NARRATIVE: CASE EVENT DATE: 20250101
